FAERS Safety Report 8179411-7 (Version None)
Quarter: 2012Q1

REPORT INFORMATION
  Report Type: 
  Country: None (occurrence: None)
  Receive Date: 20120302
  Receipt Date: 20120227
  Transmission Date: 20120608
  Serious: Yes (Death)
  Sender: FDA-Public Use
  Company Number: CHPA2012US003755

PATIENT
  Age: 45 Year
  Sex: Female

DRUGS (10)
  1. ACETAMINOPHEN, DIPHENHYDRAMINE CITRATE [Suspect]
     Route: 048
  2. DIPHENHYDRAMINE HCL [Suspect]
     Route: 048
  3. ACETAMINOPHEN W/ PROPOXYPHENE HCL [Suspect]
     Route: 048
  4. PRAMIPEXOLE DIHYCHLLORIDE [Suspect]
     Route: 048
  5. PREGABALIN [Suspect]
     Route: 048
  6. CLONAZEPAM [Suspect]
     Route: 048
  7. LAMOTRIGINE [Suspect]
     Route: 048
  8. TOPIRAMATE [Suspect]
     Route: 048
  9. ACETAMINOPHEN AND HYDROCODONE BITARTRATE [Suspect]
     Route: 048
  10. FLUOXETINE [Suspect]
     Route: 048

REACTIONS (1)
  - DEATH [None]
